FAERS Safety Report 12705073 (Version 3)
Quarter: 2016Q4

REPORT INFORMATION
  Report Type: Spontaneous
  Country: US (occurrence: US)
  Receive Date: 20160831
  Receipt Date: 20161117
  Transmission Date: 20170207
  Serious: Yes (Other)
  Sender: FDA-Public Use
  Company Number: US-AMGEN-USASP2016108137

PATIENT
  Age: 49 Year
  Sex: Female
  Weight: 76 kg

DRUGS (20)
  1. CALCIUM [Concomitant]
     Active Substance: CALCIUM
     Dosage: UNK
  2. HUMIRA [Suspect]
     Active Substance: ADALIMUMAB
     Indication: PRODUCT USED FOR UNKNOWN INDICATION
     Dosage: UNK
     Route: 065
  3. NOVOLOG [Concomitant]
     Active Substance: INSULIN ASPART
     Dosage: 100 UNIT/ML INPN
  4. METFORMIN [Concomitant]
     Active Substance: METFORMIN HYDROCHLORIDE
     Dosage: UNK
  5. XELJANZ [Suspect]
     Active Substance: TOFACITINIB CITRATE
     Indication: PRODUCT USED FOR UNKNOWN INDICATION
     Dosage: UNK UNK, 2 TIMES A DAY
     Route: 048
     Dates: start: 2016
  6. PREDNISONE. [Concomitant]
     Active Substance: PREDNISONE
     Indication: OSTEOPENIA
     Dosage: 5 MG, TWO TO THREE TIMES A WEEK
  7. IRBESARTAN HYDROCHLOROTHIAZIDE [Concomitant]
     Active Substance: HYDROCHLOROTHIAZIDE\IRBESARTAN
     Dosage: 150-12.5 MG PER TABLET
  8. ENBREL [Suspect]
     Active Substance: ETANERCEPT
     Indication: RHEUMATOID ARTHRITIS
     Dosage: UNK
     Route: 065
  9. PREDNISONE. [Concomitant]
     Active Substance: PREDNISONE
     Indication: PAIN
     Dosage: 5 MG, DAILY
     Route: 048
  10. ULTRAVATE [Concomitant]
     Active Substance: HALOBETASOL PROPIONATE
     Dosage: UNK UNK, APPLY TO AFFECTED AREA(S) 2 TIMES PER DAY
     Route: 061
  11. AVALIDE [Concomitant]
     Active Substance: HYDROCHLOROTHIAZIDE\IRBESARTAN
     Dosage: 150 MG-12.5 MG TAB, DAILY
     Route: 048
  12. INSULIN ASPART [Concomitant]
     Active Substance: INSULIN ASPART
     Dosage: UNK
     Route: 058
  13. INSULIN GLARGINE [Concomitant]
     Active Substance: INSULIN GLARGINE
     Dosage: 300 UNIT/ML (1.5 ML) INPN, UNK
  14. ACTEMRA [Concomitant]
     Active Substance: TOCILIZUMAB
     Dosage: 162 MG/0.9 ML, SYRG EVERY WEEK
     Route: 058
  15. ORENCIA [Suspect]
     Active Substance: ABATACEPT
     Indication: PRODUCT USED FOR UNKNOWN INDICATION
     Dosage: UNK
     Route: 065
  16. FOSAMAX [Concomitant]
     Active Substance: ALENDRONATE SODIUM
     Dosage: UNK
  17. PRAVASTATIN. [Concomitant]
     Active Substance: PRAVASTATIN
     Dosage: 20 MG, UNK
  18. VOLTAREN [Concomitant]
     Active Substance: DICLOFENAC SODIUM
     Dosage: 2 G TO AFFECTED AREAS, UNK
     Route: 061
  19. METHOTREXATE. [Concomitant]
     Active Substance: METHOTREXATE
     Dosage: UNK
  20. VITAMIN D [Concomitant]
     Active Substance: CHOLECALCIFEROL
     Dosage: UNK

REACTIONS (35)
  - Osteoarthritis [Unknown]
  - Hepatic enzyme increased [Unknown]
  - Joint range of motion decreased [Unknown]
  - Hypertension [Unknown]
  - Joint effusion [Unknown]
  - Swelling [Unknown]
  - Synovitis [Unknown]
  - Arthralgia [Unknown]
  - Chest pain [Unknown]
  - Psoriasis [Unknown]
  - Pulmonary mass [Unknown]
  - Osteopenia [Unknown]
  - Hyperglycaemia [Unknown]
  - Pain [Not Recovered/Not Resolved]
  - Headache [Unknown]
  - Exostosis [Unknown]
  - Liver function test abnormal [Unknown]
  - Pain in extremity [Unknown]
  - Body mass index abnormal [Unknown]
  - Obesity [Unknown]
  - Treatment failure [Unknown]
  - Hepatocellular carcinoma [Unknown]
  - Malaise [Unknown]
  - Mobility decreased [Not Recovered/Not Resolved]
  - Tenosynovitis [Unknown]
  - Type 2 diabetes mellitus [Unknown]
  - Laboratory test abnormal [Unknown]
  - Fatigue [Unknown]
  - Palpitations [Unknown]
  - Arthritis [Unknown]
  - Hypoglycaemia [Unknown]
  - Chest discomfort [Unknown]
  - Enzyme level abnormal [Unknown]
  - Blood creatinine increased [Unknown]
  - Musculoskeletal stiffness [Unknown]

NARRATIVE: CASE EVENT DATE: 2003
